FAERS Safety Report 9716055 (Version 1)
Quarter: 2013Q4

REPORT INFORMATION
  Report Type: Other
  Country: GB (occurrence: GB)
  Receive Date: 20131127
  Receipt Date: 20131127
  Transmission Date: 20140711
  Serious: Yes (Life-Threatening, Hospitalization)
  Sender: FDA-Public Use
  Company Number: GB-TARO PHARMACEUTICALS U.S.A., INC-2013SUN05065

PATIENT
  Age: 65 Year
  Sex: Male

DRUGS (14)
  1. WARFARIN [Suspect]
     Indication: ATRIAL FIBRILLATION
     Dosage: 1 DF, 1DOSE/2DAYS
     Route: 048
  2. WARFARIN [Suspect]
     Indication: CARDIAC FAILURE CONGESTIVE
     Dosage: 4 MG, UNK
     Route: 048
  3. FUROSEMIDE [Suspect]
     Indication: CARDIAC FAILURE CONGESTIVE
     Dosage: 2 DF, OD
     Route: 048
  4. OMEPRAZOLE [Suspect]
     Indication: GASTROOESOPHAGEAL REFLUX PROPHYLAXIS
     Dosage: 40 MG, OD
     Route: 048
  5. SPIRONOLACTONE [Suspect]
     Indication: CARDIAC FAILURE CONGESTIVE
     Dosage: 25 MG, OD
     Route: 048
  6. BISOPROLOL [Concomitant]
  7. DIGOXIN [Concomitant]
  8. FOLIC ACID [Concomitant]
  9. PARACETAMOL [Concomitant]
  10. SALBUTAMOL [Concomitant]
  11. SYMBICORT [Concomitant]
  12. THIAMINE [Concomitant]
  13. TIOTROPIUM [Concomitant]
  14. VITAMIN B COMPLEX STRONG [Concomitant]

REACTIONS (2)
  - Hyponatraemia [Not Recovered/Not Resolved]
  - International normalised ratio increased [Recovered/Resolved]
